FAERS Safety Report 6744553-7 (Version None)
Quarter: 2010Q2

REPORT INFORMATION
  Report Type: 
  Country: None (occurrence: None)
  Receive Date: 20100527
  Receipt Date: 20100517
  Transmission Date: 20101027
  Serious: Yes (Other)
  Sender: FDA-Public Use
  Company Number: PHHY2010JP32104

PATIENT

DRUGS (2)
  1. FLUVASTATIN [Suspect]
     Route: 048
  2. SIMVASTATIN [Suspect]
     Route: 048

REACTIONS (1)
  - HAEMATOMA [None]
